FAERS Safety Report 24578183 (Version 1)
Quarter: 2024Q4

REPORT INFORMATION
  Report Type: Spontaneous
  Country: RS (occurrence: RS)
  Receive Date: 20241104
  Receipt Date: 20241104
  Transmission Date: 20250115
  Serious: Yes (Other)
  Sender: ROCHE
  Company Number: RS-ROCHE-10000120768

PATIENT
  Age: 49 Year
  Sex: Female

DRUGS (4)
  1. BEVACIZUMAB [Suspect]
     Active Substance: BEVACIZUMAB
     Indication: Adenocarcinoma
     Route: 065
  2. ATEZOLIZUMAB [Suspect]
     Active Substance: ATEZOLIZUMAB
     Indication: Adenocarcinoma
     Route: 065
     Dates: start: 20240617
  3. PACLITAXEL [Suspect]
     Active Substance: PACLITAXEL
     Indication: Adenocarcinoma
     Route: 065
  4. PLATINUM [Suspect]
     Active Substance: PLATINUM
     Indication: Adenocarcinoma
     Route: 065

REACTIONS (1)
  - Metastases to central nervous system [Unknown]
